FAERS Safety Report 4906815-5 (Version None)
Quarter: 2006Q1

REPORT INFORMATION
  Report Type: 
  Country: None (occurrence: None)
  Receive Date: 20060209
  Receipt Date: 20060207
  Transmission Date: 20060701
  Serious: Yes (Other)
  Sender: FDA-Public Use
  Company Number: US-BRISTOL-MYERS SQUIBB COMPANY-13274477

PATIENT
  Sex: Female

DRUGS (1)
  1. STADOL [Suspect]
     Indication: MIGRAINE

REACTIONS (1)
  - CEREBROVASCULAR ACCIDENT [None]
